FAERS Safety Report 24640541 (Version 1)
Quarter: 2024Q4

REPORT INFORMATION
  Report Type: Spontaneous
  Country: IN (occurrence: IN)
  Receive Date: 20241120
  Receipt Date: 20241120
  Transmission Date: 20250114
  Serious: Yes (Hospitalization, Other)
  Sender: Steriscience PTE
  Company Number: IN-STERISCIENCE B.V.-2024-ST-001914

PATIENT
  Age: 15 Year
  Sex: Male

DRUGS (3)
  1. MEROPENEM [Suspect]
     Active Substance: MEROPENEM
     Indication: Haematological infection
     Dosage: 1 GRAM, Q8H
     Route: 042
  2. POLYMYXIN B [Suspect]
     Active Substance: POLYMYXIN B
     Indication: Pseudomonas infection
     Dosage: LOADING DOSE OF 1.5 MILLION UNITS
     Route: 042
  3. POLYMYXIN B [Suspect]
     Active Substance: POLYMYXIN B
     Dosage: LOADING DOSE OF 0.75 MILLION UNITS EVERY 12 HOURS

REACTIONS (4)
  - Empyema [Unknown]
  - Pneumonia [Unknown]
  - Disease progression [Unknown]
  - Drug ineffective [Unknown]
